FAERS Safety Report 7062002-9 (Version None)
Quarter: 2010Q4

REPORT INFORMATION
  Report Type: 
  Country: None (occurrence: None)
  Receive Date: 20101026
  Receipt Date: 20101020
  Transmission Date: 20110411
  Serious: Yes (Hospitalization)
  Sender: FDA-Public Use
  Company Number: US-BRISTOL-MYERS SQUIBB COMPANY-15345143

PATIENT
  Age: 38 Year
  Sex: Female
  Weight: 122 kg

DRUGS (9)
  1. IXABEPILONE [Suspect]
     Indication: BREAST CANCER
     Dosage: 35MG(16MG/M2) LAST INFUSION ON 7OCT2010
     Dates: start: 20100629
  2. CARBOPLATIN [Suspect]
     Indication: BREAST CANCER
     Dosage: AUC 2 QWK 1+8 OF 21DAYS LAST INFUSION ON 7OCT2010
     Dates: start: 20100629
  3. METOPROLOL TARTRATE [Suspect]
     Indication: HYPERTENSION
     Route: 048
     Dates: start: 20080101, end: 20101008
  4. VERAPAMIL [Suspect]
     Indication: HYPERTENSION
     Route: 048
     Dates: start: 20080101, end: 20101008
  5. LISINOPRIL [Concomitant]
     Indication: HYPERTENSION
     Route: 048
     Dates: start: 20080101, end: 20101008
  6. PERCOCET [Concomitant]
     Indication: PAIN
     Dosage: 1DF = 1-2 PO Q40 PRN.
     Route: 048
     Dates: start: 20100727
  7. ATIVAN [Concomitant]
     Indication: ANXIETY
     Dosage: Q6PRN
     Route: 048
     Dates: start: 20100624, end: 20101008
  8. PEPCID AC [Concomitant]
     Indication: DYSPEPSIA
     Dosage: BID
     Route: 048
     Dates: start: 20100811, end: 20101008
  9. MULTI-VITAMIN [Concomitant]
     Indication: VITAMIN SUPPLEMENTATION
     Dosage: 1 DF = 1 UNS
     Route: 048
     Dates: start: 20100620

REACTIONS (2)
  - CHEST PAIN [None]
  - CONGESTIVE CARDIOMYOPATHY [None]
